FAERS Safety Report 6379856-1 (Version None)
Quarter: 2009Q3

REPORT INFORMATION
  Report Type: 
  Country: None (occurrence: None)
  Receive Date: 20090923
  Receipt Date: 20090916
  Transmission Date: 20100115
  Serious: Yes (Hospitalization)
  Sender: FDA-Public Use
  Company Number: GXKR2009DE10251

PATIENT
  Age: 81 Year
  Sex: Female
  Weight: 72 kg

DRUGS (16)
  1. CIPROFLOXACIN [Suspect]
     Indication: URINARY TRACT INFECTION
     Dosage: 500 MG, BID, ORAL
     Route: 048
     Dates: start: 20080820, end: 20080823
  2. ASPIRIN [Suspect]
     Indication: CORONARY ARTERY DISEASE
     Dosage: 100 MG, QD, ORAL
     Route: 048
     Dates: start: 20050919, end: 20080909
  3. VOLTAREN [Suspect]
     Indication: ARTHRITIS
     Dosage: 75 MG, BID, ORAL
     Route: 048
     Dates: start: 20080501, end: 20080601
  4. PANTOPRAZOLE SODIUM [Suspect]
     Indication: PROPHYLAXIS AGAINST GASTROINTESTINAL ULCER
     Dosage: 20 MG, QD, ORAL
     Route: 048
     Dates: start: 20080820
  5. COTRIMOXAZOL          ^ALIUD^      (SULFAMETHOXAZOLE, TRIMETHOPRIM) [Suspect]
     Indication: URINARY TRACT INFECTION
     Dosage: 960 MG, BID, ORAL
     Route: 048
     Dates: start: 20080824, end: 20080827
  6. VERAPAMIL [Concomitant]
  7. PREDNISOLONE [Concomitant]
  8. PRAVASTATIN [Concomitant]
  9. PARACETAMOL (PARACETAMOL) [Concomitant]
  10. OXYCODONE HCL [Concomitant]
  11. MOXONIDINE (MOXONIDINE) [Concomitant]
  12. FOSINOPRIL SODIUM [Concomitant]
  13. FOSAVANCE (ALENDRONATE SODIUM, COLECALCIFEROL) [Concomitant]
  14. CALCILAC KT (CALCIUM CARBONATE, COLECALCIFEROL) [Concomitant]
  15. ARELIX            (PIRETANIDE SODIUM) [Concomitant]
  16. ACERBON       ^ICI^ (LISINOPRIL) [Concomitant]

REACTIONS (2)
  - DRUG INTERACTION [None]
  - PSEUDOMEMBRANOUS COLITIS [None]
